FAERS Safety Report 5851331-X (Version None)
Quarter: 2008Q3

REPORT INFORMATION
  Report Type: 
  Country: None (occurrence: None)
  Receive Date: 20080731
  Receipt Date: 20080409
  Transmission Date: 20090109
  Serious: No
  Sender: FDA-Public Use
  Company Number: US200804002835

PATIENT
  Age: 62 Year
  Sex: Female
  Weight: 59.9 kg

DRUGS (10)
  1. BYETTA [Suspect]
     Indication: INSULIN-REQUIRING TYPE 2 DIABETES MELLITUS
     Dosage: 5 UG, 2/D, SUBCUTANEOUS
     Route: 058
     Dates: start: 20071201, end: 20080408
  2. HUMULIN 30/70 (INSULIN HUMAN INJECTION, ISOPHANE) [Concomitant]
  3. NORVASC [Concomitant]
  4. METOPROLOL TARTRATE [Concomitant]
  5. TRICOR [Concomitant]
  6. ISOSORBIDE MONONITRATE [Concomitant]
  7. PLAVIX [Concomitant]
  8. NITROGLYCERIN [Concomitant]
  9. AMBIEN [Concomitant]
  10. DRUG USED IN DIABETES [Concomitant]

REACTIONS (5)
  - BLOOD GLUCOSE DECREASED [None]
  - BLOOD PRESSURE INCREASED [None]
  - FEELING COLD [None]
  - TREMOR [None]
  - WEIGHT DECREASED [None]
